FAERS Safety Report 10036630 (Version 1)
Quarter: 2014Q1

REPORT INFORMATION
  Report Type: Spontaneous
  Country: US (occurrence: US)
  Receive Date: 20140326
  Receipt Date: 20140326
  Transmission Date: 20141002
  Serious: No
  Sender: FDA-Public Use
  Company Number: US-BIOGENIDEC-2014BI019877

PATIENT
  Age: 57 Year
  Sex: Female

DRUGS (1)
  1. AVONEX [Suspect]
     Indication: MULTIPLE SCLEROSIS
     Route: 030
     Dates: start: 20120525

REACTIONS (7)
  - Contusion [Not Recovered/Not Resolved]
  - Gait disturbance [Recovered/Resolved]
  - Local swelling [Not Recovered/Not Resolved]
  - Purulent discharge [Not Recovered/Not Resolved]
  - Haemorrhage [Not Recovered/Not Resolved]
  - Feeling hot [Not Recovered/Not Resolved]
  - Pain in extremity [Not Recovered/Not Resolved]
